FAERS Safety Report 5754261-7 (Version None)
Quarter: 2008Q2

REPORT INFORMATION
  Report Type: 
  Country: None (occurrence: None)
  Receive Date: 20080530
  Receipt Date: 20080521
  Transmission Date: 20081010
  Serious: Yes (Hospitalization)
  Sender: FDA-Public Use
  Company Number: AR-PFIZER INC-2006111093

PATIENT
  Sex: Female
  Weight: 49 kg

DRUGS (11)
  1. SU-011,248 [Suspect]
     Indication: RENAL CELL CARCINOMA
     Route: 048
     Dates: start: 20060515, end: 20060901
  2. PAMIDRONATE DISODIUM [Concomitant]
     Route: 042
  3. OXYCODONE HCL [Concomitant]
     Route: 048
     Dates: start: 20050701
  4. IBUROFEN [Concomitant]
     Route: 048
     Dates: start: 20050701, end: 20060501
  5. CLONAZEPAM [Concomitant]
     Route: 048
     Dates: start: 20050701
  6. IRON PREPARATIONS [Concomitant]
     Route: 048
     Dates: start: 20050701
  7. GABAPENTIN [Concomitant]
     Route: 048
     Dates: start: 20060505, end: 20060515
  8. ACETAMINOPHEN [Concomitant]
     Route: 048
     Dates: start: 20060501
  9. PANTOPRAZOLE [Concomitant]
     Route: 048
     Dates: start: 20060626
  10. DOMPERIDONE [Concomitant]
     Route: 048
     Dates: start: 20060626
  11. AMILORIDE HCL AND HYDROCHLOROTHIAZIDE [Concomitant]
     Route: 048
     Dates: start: 20060809

REACTIONS (6)
  - CULTURE POSITIVE [None]
  - DISEASE PROGRESSION [None]
  - ESCHERICHIA INFECTION [None]
  - POSTOPERATIVE WOUND INFECTION [None]
  - PURULENT DISCHARGE [None]
  - PYREXIA [None]
